FAERS Safety Report 8336730-9 (Version None)
Quarter: 2012Q2

REPORT INFORMATION
  Report Type: 
  Country: None (occurrence: None)
  Receive Date: 20120504
  Receipt Date: 20120425
  Transmission Date: 20120825
  Serious: Yes (Hospitalization)
  Sender: FDA-Public Use
  Company Number: FR-SANOFI-AVENTIS-2012SA028900

PATIENT
  Age: 1 Day
  Sex: Male
  Weight: 2.89 kg

DRUGS (4)
  1. OXAZEPAM [Suspect]
     Route: 064
     Dates: start: 20090721, end: 20100406
  2. CHLORPROMAZINE HCL [Suspect]
     Route: 064
     Dates: start: 20090721, end: 20100406
  3. ZOLPIDEM TARTRATE [Suspect]
     Route: 064
     Dates: start: 20090721, end: 20100406
  4. METHADONE HCL [Suspect]
     Route: 064
     Dates: start: 20090721, end: 20100406

REACTIONS (6)
  - AGITATION NEONATAL [None]
  - MATERNAL EXPOSURE DURING PREGNANCY [None]
  - AGITATION [None]
  - POOR SUCKING REFLEX [None]
  - DRUG WITHDRAWAL SYNDROME NEONATAL [None]
  - HYPERTONIA [None]
